FAERS Safety Report 17553221 (Version 2)
Quarter: 2020Q1

REPORT INFORMATION
  Report Type: Spontaneous
  Country: US (occurrence: US)
  Receive Date: 20200317
  Receipt Date: 20200326
  Transmission Date: 20200409
  Serious: Yes (Death, Other)
  Sender: FDA-Public Use
  Company Number: US-AGIOS-2002US01653

PATIENT

DRUGS (2)
  1. BUSULFAN. [Concomitant]
     Active Substance: BUSULFAN
     Indication: BONE MARROW TRANSPLANT
     Dosage: 360 MILLIGRAM
  2. TIBSOVO [Suspect]
     Active Substance: IVOSIDENIB
     Indication: ACUTE MYELOID LEUKAEMIA
     Dosage: 500 MILLIGRAM, QD

REACTIONS (5)
  - Differentiation syndrome [Unknown]
  - Drug level decreased [Unknown]
  - Leukaemia recurrent [Unknown]
  - Graft versus host disease [Unknown]
  - Infection [Fatal]

NARRATIVE: CASE EVENT DATE: 201911
